FAERS Safety Report 4725959-4 (Version None)
Quarter: 2005Q3

REPORT INFORMATION
  Report Type: 
  Country: None (occurrence: None)
  Receive Date: 20050727
  Receipt Date: 20041203
  Transmission Date: 20060218
  Serious: Yes (Other)
  Sender: FDA-Public Use
  Company Number: GB-GLAXOSMITHKLINE-B0359547A

PATIENT
  Sex: Male

DRUGS (2)
  1. SEROXAT [Suspect]
     Indication: DEPRESSION
     Dosage: 20MG PER DAY
     Route: 065
     Dates: start: 20020701, end: 20021101
  2. PROPRANOLOL [Concomitant]
     Route: 065

REACTIONS (4)
  - AGGRESSION [None]
  - DRUG WITHDRAWAL SYNDROME [None]
  - PERSONALITY CHANGE [None]
  - SELF-INJURIOUS IDEATION [None]
